FAERS Safety Report 10384417 (Version 2)
Quarter: 2014Q3

REPORT INFORMATION
  Report Type: Spontaneous
  Country: US (occurrence: US)
  Receive Date: 20140814
  Receipt Date: 20140828
  Transmission Date: 20150326
  Serious: Yes (Hospitalization, Other)
  Sender: FDA-Public Use
  Company Number: US-PURDUE-USA-2014-0116488

PATIENT
  Age: 24 Year
  Sex: Female

DRUGS (3)
  1. HYDROMORPHONE HCL [Suspect]
     Active Substance: HYDROMORPHONE HYDROCHLORIDE
     Indication: SICKLE CELL ANAEMIA WITH CRISIS
     Dosage: 1 MG, UNK
     Route: 042
  2. HYDROMORPHONE HCL (SIMILAR TO 19-892) [Suspect]
     Active Substance: HYDROMORPHONE HYDROCHLORIDE
     Indication: SICKLE CELL ANAEMIA WITH CRISIS
     Route: 048
  3. MORPHINE SULFATE EXTENDED-RELEASE TABLETS (RHODES 74-862) [Suspect]
     Active Substance: MORPHINE
     Indication: SICKLE CELL ANAEMIA WITH CRISIS
     Dosage: 45 MG, BID
     Route: 048

REACTIONS (1)
  - Secondary adrenocortical insufficiency [Recovered/Resolved]
